FAERS Safety Report 23901250 (Version 1)
Quarter: 2024Q2

REPORT INFORMATION
  Report Type: Spontaneous
  Country: US (occurrence: None)
  Receive Date: 20240526
  Receipt Date: 20240526
  Transmission Date: 20240716
  Serious: No
  Sender: FDA-Public Use
  Company Number: US-ROCHE-3524029

PATIENT
  Sex: Female

DRUGS (1)
  1. OCREVUS [Suspect]
     Active Substance: OCRELIZUMAB
     Indication: Multiple sclerosis
     Dosage: 300 MG X2
     Route: 065
     Dates: start: 202308

REACTIONS (3)
  - Maternal exposure before pregnancy [Unknown]
  - Anxiety [Unknown]
  - Post-traumatic stress disorder [Unknown]
